FAERS Safety Report 19182850 (Version 6)
Quarter: 2021Q4

REPORT INFORMATION
  Report Type: Other
  Country: JP (occurrence: JP)
  Receive Date: 20210426
  Receipt Date: 20211222
  Transmission Date: 20220303
  Serious: Yes (Death, Life-Threatening, Hospitalization)
  Sender: FDA-Public Use
  Company Number: JP-CHUGAI-A2021016301ROCHE

PATIENT
  Age: 83 Year
  Sex: Male
  Weight: 57.5 kg

DRUGS (5)
  1. ENTRECTINIB [Suspect]
     Active Substance: ENTRECTINIB
     Indication: Non-small cell lung cancer
     Route: 048
     Dates: start: 20210323, end: 20210430
  2. ENTRECTINIB [Suspect]
     Active Substance: ENTRECTINIB
     Dosage: DOSE INTERVAL UNCERTAINTY
     Route: 048
     Dates: start: 202104
  3. ENTRECTINIB [Suspect]
     Active Substance: ENTRECTINIB
     Route: 048
     Dates: start: 20210528, end: 20210625
  4. LASIX [Concomitant]
     Active Substance: FUROSEMIDE
     Indication: Malignant ascites
     Dosage: DOSAGE IS UNCERTAIN.
     Route: 065
  5. TRAMCET [Concomitant]
     Active Substance: ACETAMINOPHEN\TRAMADOL
     Indication: Malignant ascites
     Dosage: DOSAGE IS UNCERTAIN.
     Route: 065

REACTIONS (8)
  - Renal impairment [Not Recovered/Not Resolved]
  - Disease progression [Fatal]
  - Pyrexia [Unknown]
  - Urinary tract infection [Not Recovered/Not Resolved]
  - Gastrointestinal disorder [Not Recovered/Not Resolved]
  - Dizziness [Unknown]
  - Pleural effusion [Recovering/Resolving]
  - Blood creatinine increased [Unknown]

NARRATIVE: CASE EVENT DATE: 20210405
